FAERS Safety Report 25588805 (Version 2)
Quarter: 2025Q3

REPORT INFORMATION
  Report Type: Spontaneous
  Country: US (occurrence: US)
  Receive Date: 20250722
  Receipt Date: 20250903
  Transmission Date: 20251021
  Serious: No
  Sender: LUPIN
  Company Number: US-LUPIN PHARMACEUTICALS INC.-2025-06165

PATIENT
  Age: 31 Year
  Weight: 63.492 kg

DRUGS (3)
  1. TESTOSTERONE GEL 1.62% [Suspect]
     Active Substance: TESTOSTERONE
     Indication: Hormone replacement therapy
  2. OLANZAPINE [Concomitant]
     Active Substance: OLANZAPINE
     Indication: Mood swings
     Route: 065
  3. CITALOPRAM [Concomitant]
     Active Substance: CITALOPRAM
     Indication: Mood swings
     Route: 065

REACTIONS (1)
  - Application site acne [Unknown]
